FAERS Safety Report 11519863 (Version 1)
Quarter: 2015Q3

REPORT INFORMATION
  Report Type: Spontaneous
  Country: US (occurrence: None)
  Receive Date: 20150916
  Receipt Date: 20150916
  Transmission Date: 20151125
  Serious: Yes (Life-Threatening)
  Sender: FDA-Public Use
  Company Number: ONY-2015-009

PATIENT

DRUGS (1)
  1. INFASURF [Suspect]
     Active Substance: CALFACTANT

REACTIONS (2)
  - Device occlusion [None]
  - Gastrooesophageal reflux disease [None]
